FAERS Safety Report 8185039-5 (Version None)
Quarter: 2012Q1

REPORT INFORMATION
  Report Type: 
  Country: None (occurrence: None)
  Receive Date: 20120301
  Receipt Date: 20120227
  Transmission Date: 20120608
  Serious: Yes (Death)
  Sender: FDA-Public Use
  Company Number: ADR-2012-00443

PATIENT
  Sex: Male

DRUGS (2)
  1. BACLOFEN [Suspect]
     Indication: BRAIN INJURY
     Dosage: 923.2 MCG/DAY
  2. BACLOFEN [Suspect]
     Indication: MUSCLE SPASTICITY
     Dosage: 923.2 MCG/DAY

REACTIONS (4)
  - PULMONARY OEDEMA [None]
  - PYREXIA [None]
  - INFECTION [None]
  - ASPHYXIA [None]
